FAERS Safety Report 16324763 (Version 1)
Quarter: 2019Q2

REPORT INFORMATION
  Report Type: Spontaneous
  Country: US (occurrence: US)
  Receive Date: 20190516
  Receipt Date: 20190516
  Transmission Date: 20190711
  Serious: No
  Sender: FDA-Public Use
  Company Number: None

PATIENT
  Age: 31 Year
  Sex: Male
  Weight: 94.5 kg

DRUGS (1)
  1. ZOLPIDEM 10MG TABLETS MFG AUROBINDO - GENERIC FOR AMBIEN 10MG TABLETS [Suspect]
     Active Substance: ZOLPIDEM TARTRATE
     Indication: INSOMNIA
     Dosage: ?          QUANTITY:1 TABLET(S);?
     Route: 048
     Dates: start: 20190501, end: 20190516

REACTIONS (2)
  - Product substitution issue [None]
  - Nightmare [None]

NARRATIVE: CASE EVENT DATE: 20190516
